FAERS Safety Report 18223621 (Version 1)
Quarter: 2020Q3

REPORT INFORMATION
  Report Type: Spontaneous
  Country: US (occurrence: US)
  Receive Date: 20200902
  Receipt Date: 20200902
  Transmission Date: 20201103
  Serious: Yes (Death)
  Sender: FDA-Public Use
  Company Number: US-PFIZER INC-2020338709

PATIENT
  Age: 17 Year
  Sex: Male

DRUGS (4)
  1. MEPERIDINE HCL [Suspect]
     Active Substance: MEPERIDINE HYDROCHLORIDE
     Indication: CARDIAC DYSFUNCTION
  2. FUROSEMIDE. [Suspect]
     Active Substance: FUROSEMIDE
     Indication: CARDIAC DYSFUNCTION
  3. MEPERIDINE HCL [Suspect]
     Active Substance: MEPERIDINE HYDROCHLORIDE
     Indication: MYOCARDIAL NECROSIS
     Dosage: UNK
  4. FUROSEMIDE. [Suspect]
     Active Substance: FUROSEMIDE
     Indication: MYOCARDIAL NECROSIS
     Dosage: UNK

REACTIONS (3)
  - Respiratory distress [Fatal]
  - Drug ineffective [Fatal]
  - Hypoxia [Fatal]
